FAERS Safety Report 14221231 (Version 2)
Quarter: 2017Q4

REPORT INFORMATION
  Report Type: Spontaneous
  Country: US (occurrence: US)
  Receive Date: 20171124
  Receipt Date: 20171128
  Transmission Date: 20180321
  Serious: No
  Sender: FDA-Public Use
  Company Number: US-PFIZER INC-2017505549

PATIENT
  Age: 80 Year
  Sex: Male
  Weight: 72.57 kg

DRUGS (1)
  1. SUTENT [Suspect]
     Active Substance: SUNITINIB MALATE
     Indication: RENAL CANCER
     Dosage: UNK
     Route: 048
     Dates: start: 201709, end: 201710

REACTIONS (4)
  - Decreased appetite [Unknown]
  - Gait inability [Unknown]
  - Epistaxis [Unknown]
  - Asthenia [Unknown]
